FAERS Safety Report 13576781 (Version 1)
Quarter: 2017Q2

REPORT INFORMATION
  Report Type: Spontaneous
  Country: FR (occurrence: FR)
  Receive Date: 20170524
  Receipt Date: 20170524
  Transmission Date: 20170830
  Serious: Yes (Hospitalization)
  Sender: FDA-Public Use
  Company Number: FR-CANTON LABORATORIES, LLC-2021155

PATIENT
  Age: 63 Year
  Sex: Female

DRUGS (5)
  1. ROACTEMRA (TOCILIZUMAB) [Suspect]
     Active Substance: TOCILIZUMAB
     Route: 058
     Dates: start: 2016, end: 20170414
  2. IMETH (METHOTREXATE) [Concomitant]
     Active Substance: METHOTREXATE
     Route: 048
  3. AMLODIPINE [Concomitant]
     Active Substance: AMLODIPINE BESYLATE
     Route: 048
  4. PARACETAMOL [Concomitant]
     Active Substance: ACETAMINOPHEN
     Route: 048
  5. NAPROSYN [Suspect]
     Active Substance: NAPROXEN
     Indication: RHEUMATOID ARTHRITIS
     Route: 048
     Dates: end: 20170414

REACTIONS (1)
  - Dermo-hypodermitis [Recovered/Resolved with Sequelae]

NARRATIVE: CASE EVENT DATE: 20170409
